FAERS Safety Report 18383033 (Version 1)
Quarter: 2020Q4

REPORT INFORMATION
  Report Type: Spontaneous
  Country: US (occurrence: US)
  Receive Date: 20201014
  Receipt Date: 20201014
  Transmission Date: 20210114
  Serious: Yes (Other)
  Sender: FDA-Public Use
  Company Number: None

PATIENT
  Age: 91 Year
  Sex: Female
  Weight: 56.25 kg

DRUGS (12)
  1. FOLIC ACID. [Concomitant]
     Active Substance: FOLIC ACID
  2. NUPLAZID [Suspect]
     Active Substance: PIMAVANSERIN TARTRATE
     Indication: HALLUCINATION
     Dosage: ?          QUANTITY:1 CAPSULE(S);?
     Route: 048
     Dates: start: 20201008, end: 20201009
  3. TOVIAZ [Concomitant]
     Active Substance: FESOTERODINE FUMARATE
  4. ROPINIROL 0.5MG [Concomitant]
  5. CO-Q-10 200MG [Concomitant]
  6. MEGESTROL AC [Concomitant]
  7. MULTIVITAMIN [Concomitant]
     Active Substance: VITAMINS
  8. MELATONIN 5MG [Concomitant]
     Active Substance: MELATONIN
  9. CARBIDOPA/LEVODOPA [Concomitant]
     Active Substance: CARBIDOPA\LEVODOPA
  10. DOCUSATE SODIUM 100MG [Concomitant]
     Active Substance: DOCUSATE SODIUM
  11. METHENAMINE HIP [Concomitant]
  12. BIOTIN 10MG [Concomitant]

REACTIONS (2)
  - Hypertension [None]
  - Feeling abnormal [None]

NARRATIVE: CASE EVENT DATE: 20201008
